FAERS Safety Report 4745744-7 (Version None)
Quarter: 2005Q3

REPORT INFORMATION
  Report Type: 
  Country: None (occurrence: None)
  Receive Date: 20050815
  Receipt Date: 20050815
  Transmission Date: 20060218
  Serious: Yes (Other)
  Sender: FDA-Public Use
  Company Number: None

PATIENT
  Sex: Male
  Weight: 90.7194 kg

DRUGS (11)
  1. AVONEX [Suspect]
     Indication: MULTIPLE SCLEROSIS
     Dosage: 30 MCG IM ONCE/WEEK  (DURATION: 5 MOS (THIS FORMULATION)  (1 YEAR ON DRUG)
  2. TRILEPTAL [Concomitant]
  3. NEURONTIN [Concomitant]
  4. BACLOFEN [Concomitant]
  5. DOXAZOSIN [Concomitant]
  6. FLOMAX [Concomitant]
  7. SOLU-MEDROL [Concomitant]
  8. ZOLADEX [Concomitant]
  9. ASCORBIC ACID [Concomitant]
  10. CALCIUM GLUCONATE [Concomitant]
  11. MULTI-VITAMIN [Concomitant]

REACTIONS (3)
  - ASTHENIA [None]
  - FATIGUE [None]
  - PHARMACEUTICAL PRODUCT COMPLAINT [None]
